FAERS Safety Report 13085261 (Version 1)
Quarter: 2017Q1

REPORT INFORMATION
  Report Type: Report from Study
  Country: US (occurrence: US)
  Receive Date: 20170104
  Receipt Date: 20170104
  Transmission Date: 20170428
  Serious: Yes (Hospitalization)
  Sender: FDA-Public Use
  Company Number: US-VERTEX PHARMACEUTICALS-2016-007079

PATIENT
  Age: 17 Year
  Sex: Male
  Weight: 78 kg

DRUGS (18)
  1. ORKAMBI [Suspect]
     Active Substance: IVACAFTOR\LUMACAFTOR
     Indication: CYSTIC FIBROSIS
     Dosage: 400-250 MG, BID
     Route: 048
     Dates: start: 20150806
  2. PANTOPRAZOLE [Concomitant]
     Active Substance: PANTOPRAZOLE SODIUM
     Dosage: TAKE 1 TABLET BY MOUTH TWICE DAILY
  3. FLUTICASONE. [Concomitant]
     Active Substance: FLUTICASONE
     Dosage: INSERT 1 SPRAY IN EACH NOSTRIL EVERY NIGHT AT BEDTIME
  4. ONDANSETRON [Concomitant]
     Active Substance: ONDANSETRON
  5. SODIUM CHLORIDE. [Concomitant]
     Active Substance: SODIUM CHLORIDE
     Dosage: 1 VIAL VIA NEBULIZE R TWICE A DAY
  6. XOPENEX HFA [Concomitant]
     Active Substance: LEVALBUTEROL TARTRATE
     Dosage: 2 PUFFS WITH SPACER PRIOR TO EXERCISE AND EVERY 2 HOURS AS NEEDED FOR COUGH, WHEEZE,
  7. CIPROFLOXACIN. [Concomitant]
     Active Substance: CIPROFLOXACIN
     Dosage: TAKE 1 TABLE T(S ) EVERY 12 HOURS BY ORAL ROUTE FOR 30 DAYS
  8. CREON [Concomitant]
     Active Substance: PANCRELIPASE AMYLASE\PANCRELIPASE LIPASE\PANCRELIPASE PROTEASE
     Dosage: TAKE 5 CAPSULES BY MOUTH BEFORE MEALS AND THREE TO FOUR BEFORE SNACKS
  9. DULERA [Concomitant]
     Active Substance: FORMOTEROL FUMARATE DIHYDRATE\MOMETASONE FUROATE
     Dosage: INHALE 2 PUFF5 BY MOUTH TWICE DAILY WITH SPACER
  10. HYDROXYZINE [Concomitant]
     Active Substance: HYDROXYZINE HYDROCHLORIDE
     Dosage: A)?TAKE 1 TABLET BY MOUTH TWICE DAILY
  11. MIRALAX [Concomitant]
     Active Substance: POLYETHYLENE GLYCOL 3350
     Dosage: 17 GMS DAILY AT BEDTIME
  12. ALBUTEROL SULFATE. [Concomitant]
     Active Substance: ALBUTEROL SULFATE
     Dosage: VIAL VIA NEBUUZER 3 TIMES A DAY AND EVERY 3 TO 4 HOURS AS NEEDED FOR COUGH, WHEEZE OR ANY INCREASED
  13. AZITHROMYCIN ANHYDROUS. [Concomitant]
     Active Substance: AZITHROMYCIN ANHYDROUS
     Dosage: TAKE 1 TABLET BY MOUTH EVERY MONDAY, WEDNESDAY, AND FRIDAY
  14. CALCIUM CARBONATE. [Concomitant]
     Active Substance: CALCIUM CARBONATE
     Dosage: 1 TABLET(S) 3 TIMES A DAY BY ORAL ROUTE.
  15. PULMOZYME [Concomitant]
     Active Substance: DORNASE ALFA
     Dosage: 1 VIAL VIA NEBULIZE R DAILY
  16. VITAMIN D3 [Concomitant]
     Active Substance: CHOLECALCIFEROL
     Dosage: 1 CAPSULE 3 TIMES PER DAY
  17. CAYSTON [Concomitant]
     Active Substance: AZTREONAM
     Dosage: MIX 1 VIAL OF CAYSTON WITH 1 SALINE AMPULE AND ADD TO ALTERA. INHALE 3 TIMES DAILY FOR 28
  18. COMPLETE FORMULATION MULTIVITAMIN [Concomitant]
     Dosage: TAKE 1 TABLET(S) EVERY DAY BY ORAL ROUTE.

REACTIONS (1)
  - Infective pulmonary exacerbation of cystic fibrosis [Recovered/Resolved]

NARRATIVE: CASE EVENT DATE: 20161128
